FAERS Safety Report 11283026 (Version 1)
Quarter: 2015Q3

REPORT INFORMATION
  Report Type: Spontaneous
  Country: FR (occurrence: None)
  Receive Date: 20150716
  Receipt Date: 20150716
  Transmission Date: 20151125
  Serious: Yes (Other)
  Sender: FDA-Public Use
  Company Number: CC400263494

PATIENT
  Age: 35 Year
  Sex: Female

DRUGS (10)
  1. TRANEXAMIC ACID. [Concomitant]
     Active Substance: TRANEXAMIC ACID
  2. METRONIDAZOLE? [Suspect]
     Active Substance: METRONIDAZOLE
     Indication: BACTERIAL TRANSLOCATION
     Route: 042
  3. CEFTRIAXONE. [Concomitant]
     Active Substance: CEFTRIAXONE
  4. ADRENALIN [Concomitant]
     Active Substance: EPINEPHRINE
  5. ATRACURIUM [Concomitant]
     Active Substance: ATRACURIUM
  6. NORADRENALIN [Concomitant]
     Active Substance: NOREPINEPHRINE\NOREPINEPHRINE BITARTRATE
  7. NACETYL CYSTEINE [Concomitant]
  8. METRONIDAZOLE? [Suspect]
     Active Substance: METRONIDAZOLE
     Indication: GASTROINTESTINAL DISORDER
     Route: 042
  9. GLUCOSE-L-PHOSPHATE [Concomitant]
  10. DISODIUM TETRAHYDRATE [Concomitant]

REACTIONS (10)
  - Intentional overdose [None]
  - Hyperlactacidaemia [None]
  - Hypotension [None]
  - Intestinal ischaemia [None]
  - Tachycardia [None]
  - Hepatitis [None]
  - Pancytopenia [None]
  - Diarrhoea [None]
  - Hypoxia [None]
  - Renal failure [None]

NARRATIVE: CASE EVENT DATE: 20150618
